FAERS Safety Report 5661848-9 (Version None)
Quarter: 2008Q1

REPORT INFORMATION
  Report Type: 
  Country: None (occurrence: None)
  Receive Date: 20080306
  Receipt Date: 20080214
  Transmission Date: 20080703
  Serious: Yes (Hospitalization)
  Sender: FDA-Public Use
  Company Number: RB-9394-2008

PATIENT
  Age: 39 Year
  Sex: Female

DRUGS (5)
  1. SUBOXONE [Suspect]
     Indication: DRUG DEPENDENCE
     Dosage: SUBLINGUAL TABLET, SUBLINGUAL TABLET
     Route: 060
     Dates: start: 20080110
  2. SUBOXONE [Suspect]
     Indication: DRUG DEPENDENCE
     Dosage: SUBLINGUAL TABLET, SUBLINGUAL TABLET
     Route: 060
     Dates: start: 20080116
  3. CENTYL(BENDROFLUMETHIAZIDE) [Concomitant]
  4. RISPERDAL [Concomitant]
  5. AKARIN (CITALOPRAM) [Concomitant]

REACTIONS (1)
  - OEDEMA PERIPHERAL [None]
